FAERS Safety Report 4900214-8 (Version None)
Quarter: 2006Q1

REPORT INFORMATION
  Report Type: 
  Country: None (occurrence: None)
  Receive Date: 20060203
  Receipt Date: 20051114
  Transmission Date: 20060701
  Serious: Yes (Other)
  Sender: FDA-Public Use
  Company Number: A01200507934

PATIENT
  Age: 74 Year
  Sex: Male

DRUGS (1)
  1. ARIXTRA [Suspect]
     Route: 058
     Dates: start: 20050825, end: 20050801

REACTIONS (2)
  - EPISTAXIS [None]
  - URINARY BLADDER HAEMORRHAGE [None]
